FAERS Safety Report 14873904 (Version 2)
Quarter: 2018Q2

REPORT INFORMATION
  Report Type: Spontaneous
  Country: US (occurrence: US)
  Receive Date: 20180510
  Receipt Date: 20180621
  Transmission Date: 20180711
  Serious: No
  Sender: FDA-Public Use
  Company Number: US-ASTRAZENECA-2018SE49039

PATIENT
  Sex: Male
  Weight: 90.3 kg

DRUGS (5)
  1. BYDUREON BCISE [Suspect]
     Active Substance: EXENATIDE
     Indication: GLYCOSYLATED HAEMOGLOBIN INCREASED
     Route: 058
     Dates: start: 201803
  2. BYDUREON BCISE [Suspect]
     Active Substance: EXENATIDE
     Indication: TYPE 2 DIABETES MELLITUS
     Route: 058
     Dates: start: 201803
  3. LANTUS [Concomitant]
     Active Substance: INSULIN GLARGINE
     Dosage: UNKNOWN
     Route: 065
  4. BYDUREON [Suspect]
     Active Substance: EXENATIDE
     Indication: GLYCOSYLATED HAEMOGLOBIN INCREASED
     Route: 058
     Dates: start: 201802
  5. BYDUREON [Suspect]
     Active Substance: EXENATIDE
     Indication: TYPE 2 DIABETES MELLITUS
     Route: 058
     Dates: start: 201802

REACTIONS (17)
  - Injection site mass [Unknown]
  - Scab [Unknown]
  - Injection site pain [Unknown]
  - Injection site haemorrhage [Unknown]
  - Abdominal hernia [Unknown]
  - Injection site rash [Unknown]
  - Fatigue [Unknown]
  - Malaise [Unknown]
  - Blood pressure abnormal [Unknown]
  - Injection site erythema [Unknown]
  - Skin atrophy [Unknown]
  - Injection site pruritus [Unknown]
  - Intentional product misuse [Unknown]
  - Needle track marks [Unknown]
  - Injection site urticaria [Unknown]
  - Haematoma [Unknown]
  - Circumstance or information capable of leading to medication error [Unknown]
